FAERS Safety Report 16365675 (Version 1)
Quarter: 2019Q2

REPORT INFORMATION
  Report Type: Spontaneous
  Country: TR (occurrence: TR)
  Receive Date: 20190529
  Receipt Date: 20190529
  Transmission Date: 20190711
  Serious: Yes (Hospitalization, Disabling)
  Sender: FDA-Public Use
  Company Number: TR-TAKEDA-2019TUS033039

PATIENT
  Age: 66 Year
  Sex: Female

DRUGS (14)
  1. DEXAMETHASONE. [Suspect]
     Active Substance: DEXAMETHASONE
     Indication: PLASMA CELL MYELOMA
     Dosage: 20 MILLIGRAM
     Route: 048
     Dates: start: 20190225, end: 20190502
  2. ZOMETA [Concomitant]
     Active Substance: ZOLEDRONIC ACID
     Indication: OSTEOPOROSIS PROPHYLAXIS
     Dosage: 4 MILLIGRAM, QD
     Route: 042
     Dates: start: 20190318, end: 20190318
  3. DARATUMUMAB [Suspect]
     Active Substance: DARATUMUMAB
     Indication: PLASMA CELL MYELOMA
     Dosage: UNK
     Route: 058
  4. VALTREX [Concomitant]
     Active Substance: VALACYCLOVIR HYDROCHLORIDE
     Indication: INFECTION PROPHYLAXIS
     Dosage: 500 MILLIGRAM, QD
     Route: 048
     Dates: start: 20190318, end: 20190503
  5. CORASPIN [Concomitant]
     Active Substance: ASPIRIN
     Indication: THROMBOSIS PROPHYLAXIS
     Dosage: 100 MILLIGRAM, QD
     Route: 048
     Dates: start: 20190315, end: 20190503
  6. CALCIMAX D3                        /01606701/ [Concomitant]
     Indication: PROPHYLAXIS
     Dosage: 40 DOSAGE FORM, QD
     Route: 048
     Dates: start: 20190318, end: 20190503
  7. CIPROFLOXACIN. [Concomitant]
     Active Substance: CIPROFLOXACIN
     Indication: ANTI-INFECTIVE THERAPY
     Dosage: 500 MILLIGRAM, BID
     Route: 048
     Dates: start: 20190516
  8. FLAGYL [Concomitant]
     Active Substance: METRONIDAZOLE\METRONIDAZOLE HYDROCHLORIDE
     Indication: ANTI-INFECTIVE THERAPY
     Dosage: 500 MILLIGRAM, BID
     Route: 048
     Dates: start: 20190516
  9. ARVELES [Concomitant]
     Active Substance: DEXKETOPROFEN
     Indication: ANALGESIC INTERVENTION SUPPORTIVE THERAPY
     Dates: start: 20190518
  10. BORTEZOMIB. [Suspect]
     Active Substance: BORTEZOMIB
     Indication: PLASMA CELL MYELOMA
     Dosage: 2.35 MILLIGRAM/SQ. METER
     Route: 058
     Dates: start: 20190225, end: 20190429
  11. LANSOR [Concomitant]
     Active Substance: LANSOPRAZOLE
     Indication: GASTROINTESTINAL DISORDER THERAPY
     Dosage: 30 MILLIGRAM, QD
     Route: 048
     Dates: start: 20180226
  12. LENALIDOMIDE [Suspect]
     Active Substance: LENALIDOMIDE
     Indication: PLASMA CELL MYELOMA
     Dosage: 25 MILLIGRAM
     Route: 048
     Dates: start: 20190225, end: 20190429
  13. AERIUS [Concomitant]
     Indication: URTICARIA
     Dosage: 5 MILLIGRAM
     Route: 048
     Dates: start: 20190318
  14. BACTRIM [Concomitant]
     Active Substance: SULFAMETHOXAZOLE\TRIMETHOPRIM
     Indication: INFECTION PROPHYLAXIS
     Dosage: UNK
     Route: 048
     Dates: start: 20190318, end: 20190503

REACTIONS (2)
  - Colonic abscess [Unknown]
  - Diverticulitis [Recovered/Resolved]

NARRATIVE: CASE EVENT DATE: 201905
